FAERS Safety Report 24081980 (Version 1)
Quarter: 2024Q3

REPORT INFORMATION
  Report Type: Spontaneous
  Country: CN (occurrence: CN)
  Receive Date: 20240712
  Receipt Date: 20240712
  Transmission Date: 20241017
  Serious: Yes (Other)
  Sender: BEIGENE
  Company Number: CN-BEIGENE-BGN-2024-010636

PATIENT

DRUGS (2)
  1. TISLELIZUMAB [Suspect]
     Active Substance: TISLELIZUMAB
     Indication: Lung neoplasm malignant
     Dosage: 200 MILLIGRAM
     Route: 041
     Dates: start: 20240706
  2. DOCETAXEL [Suspect]
     Active Substance: DOCETAXEL\DOCETAXEL ANHYDROUS
     Indication: Lung neoplasm malignant
     Dosage: 100 MILLIGRAM
     Route: 041
     Dates: start: 20240706

REACTIONS (3)
  - Gamma-glutamyltransferase increased [Recovering/Resolving]
  - Blood lactate dehydrogenase increased [Recovering/Resolving]
  - Alpha hydroxybutyrate dehydrogenase increased [Recovering/Resolving]

NARRATIVE: CASE EVENT DATE: 20240708
